FAERS Safety Report 4333594-5 (Version None)
Quarter: 2004Q1

REPORT INFORMATION
  Report Type: 
  Country: None (occurrence: None)
  Receive Date: 20040329
  Receipt Date: 20040123
  Transmission Date: 20041129
  Serious: No
  Sender: FDA-Public Use
  Company Number: 04P-163-0247363-00

PATIENT
  Age: 49 Year
  Sex: Female

DRUGS (7)
  1. HUMIRA [Suspect]
     Indication: RHEUMATOID ARTHRITIS
     Dosage: SEE IMAGE
     Route: 058
     Dates: start: 20030906, end: 20040107
  2. HUMIRA [Suspect]
     Indication: RHEUMATOID ARTHRITIS
     Dosage: SEE IMAGE
     Route: 058
     Dates: start: 20040107
  3. ROFECOXIB [Concomitant]
  4. VICOPROFEN [Concomitant]
  5. RISEDRONATE SODIUM [Concomitant]
  6. METOPROLOL SUCCINATE [Concomitant]
  7. CALCIUM [Concomitant]

REACTIONS (1)
  - HYPOAESTHESIA [None]
